FAERS Safety Report 14319167 (Version 2)
Quarter: 2018Q1

REPORT INFORMATION
  Report Type: Spontaneous
  Country: FR (occurrence: FR)
  Receive Date: 20171222
  Receipt Date: 20180105
  Transmission Date: 20180509
  Serious: Yes (Hospitalization)
  Sender: FDA-Public Use
  Company Number: FR-MYLANLABS-2017M1080429

PATIENT
  Age: 2 Year
  Sex: Male

DRUGS (3)
  1. RIVOTRIL [Suspect]
     Active Substance: CLONAZEPAM
     Indication: PRODUCT USED FOR UNKNOWN INDICATION
     Dosage: UNK
     Route: 048
  2. SEROPRAM (CITALOPRAM HYDROBROMIDE) [Suspect]
     Active Substance: CITALOPRAM HYDROBROMIDE
     Indication: PRODUCT USED FOR UNKNOWN INDICATION
     Route: 048
  3. ZOLPIDEM [Suspect]
     Active Substance: ZOLPIDEM\ZOLPIDEM TARTRATE
     Indication: PRODUCT USED FOR UNKNOWN INDICATION
     Dosage: UNK
     Route: 048

REACTIONS (6)
  - Ataxia [Recovered/Resolved]
  - Somnolence [Recovered/Resolved]
  - Abnormal behaviour [Recovered/Resolved]
  - Medication error [Recovered/Resolved]
  - Accidental exposure to product [Recovered/Resolved]
  - Mydriasis [Recovered/Resolved]

NARRATIVE: CASE EVENT DATE: 20171121
